FAERS Safety Report 13695210 (Version 1)
Quarter: 2017Q2

REPORT INFORMATION
  Report Type: Not Available
  Country: US (occurrence: US)
  Receive Date: 20170627
  Receipt Date: 20170627
  Transmission Date: 20170830
  Serious: No
  Sender: FDA-Public Use
  Company Number: US-ANIPHARMA-2017-US-007394

PATIENT
  Age: 56 Year
  Sex: Female

DRUGS (1)
  1. INDERAL LA [Suspect]
     Active Substance: PROPRANOLOL HYDROCHLORIDE

REACTIONS (2)
  - Drug ineffective [Unknown]
  - Dizziness [Unknown]
